FAERS Safety Report 8208097-8 (Version None)
Quarter: 2012Q1

REPORT INFORMATION
  Report Type: 
  Country: None (occurrence: None)
  Receive Date: 20120314
  Receipt Date: 20120309
  Transmission Date: 20120608
  Serious: Yes (Death)
  Sender: FDA-Public Use
  Company Number: IN-SANOFI-AVENTIS-2012SA016305

PATIENT
  Age: 56 Year
  Sex: Male
  Weight: 58 kg

DRUGS (6)
  1. BLINDED THERAPY [Suspect]
     Indication: NON-SMALL CELL LUNG CANCER STAGE IV
     Route: 042
     Dates: start: 20120206, end: 20120206
  2. DEXAMETHASONE [Concomitant]
     Indication: PROPHYLAXIS
     Dates: start: 20120205, end: 20120207
  3. DOCETAXEL [Suspect]
     Indication: NON-SMALL CELL LUNG CANCER STAGE IV
     Route: 042
     Dates: start: 20120206, end: 20120206
  4. TRAMADOL HCL [Concomitant]
     Indication: PAIN
     Dates: start: 20120127
  5. GRANISETRON [Concomitant]
     Dates: start: 20120206, end: 20120206
  6. RANITIDINE [Concomitant]
     Dates: start: 20120206, end: 20120206

REACTIONS (3)
  - INTERSTITIAL LUNG DISEASE [None]
  - SEPTIC SHOCK [None]
  - BACK PAIN [None]
